FAERS Safety Report 8814234 (Version 2)
Quarter: 2012Q4

REPORT INFORMATION
  Report Type: 
  Country: US (occurrence: US)
  Receive Date: 20120928
  Receipt Date: 20121119
  Transmission Date: 20130627
  Serious: No
  Sender: FDA-Public Use
  Company Number: US-JNJFOC-20120909098

PATIENT
  Age: 29 Year
  Sex: Male
  Weight: 113.4 kg

DRUGS (3)
  1. INVEGA SUSTENNA [Suspect]
     Indication: PRODUCT USED FOR UNKNOWN INDICATION
     Route: 030
     Dates: start: 20120724
  2. CELEXA [Concomitant]
     Route: 048
  3. COGENTIN [Concomitant]
     Route: 048

REACTIONS (2)
  - Underdose [Recovered/Resolved]
  - Syringe issue [Recovered/Resolved]
